FAERS Safety Report 10909591 (Version 1)
Quarter: 2015Q1

REPORT INFORMATION
  Report Type: Spontaneous
  Country: US (occurrence: US)
  Receive Date: 20150312
  Receipt Date: 20150312
  Transmission Date: 20150721
  Serious: No
  Sender: FDA-Public Use
  Company Number: US-SA-2014SA066983

PATIENT
  Age: 75 Year
  Sex: Female

DRUGS (2)
  1. CLARITIN [Concomitant]
     Active Substance: LORATADINE
  2. NASACORT ALLERGY 24HR [Suspect]
     Active Substance: TRIAMCINOLONE ACETONIDE
     Indication: RHINITIS
     Dosage: DOSE: 1 SPRAY/NARE?STARTED FROM ABOUT A WEEK AGO AND STOPPED AROUND 3-4 DAYS AGO
     Route: 065
     Dates: start: 201405, end: 201405

REACTIONS (2)
  - Sleep disorder [Unknown]
  - Drug ineffective [Unknown]
